FAERS Safety Report 6741125-5 (Version None)
Quarter: 2010Q2

REPORT INFORMATION
  Report Type: 
  Country: None (occurrence: None)
  Receive Date: 20100526
  Receipt Date: 20100517
  Transmission Date: 20101027
  Serious: Yes (Other)
  Sender: FDA-Public Use
  Company Number: FR-ASTRAZENECA-2010SE22889

PATIENT
  Age: 22088 Day
  Sex: Female

DRUGS (3)
  1. DIPRIVAN [Suspect]
     Indication: ANAESTHESIA
     Route: 042
     Dates: start: 20100330, end: 20100330
  2. TRACRIUM [Suspect]
     Route: 042
     Dates: start: 20100330, end: 20100330
  3. ULTIVA [Suspect]
     Indication: ANAESTHESIA
     Route: 042
     Dates: start: 20100330, end: 20100330

REACTIONS (1)
  - ANAPHYLACTIC SHOCK [None]
